FAERS Safety Report 12484002 (Version 2)
Quarter: 2016Q3

REPORT INFORMATION
  Report Type: Spontaneous
  Country: GB (occurrence: GB)
  Receive Date: 20160621
  Receipt Date: 20160708
  Transmission Date: 20161109
  Serious: Yes (Other)
  Sender: FDA-Public Use
  Company Number: GB-SA-2016SA111080

PATIENT
  Age: 70 Year
  Sex: Female

DRUGS (11)
  1. LEFLUNOMIDE. [Suspect]
     Active Substance: LEFLUNOMIDE
     Dosage: 10 MG, ON MONDAYS, WEDNESDAYS AND FRIDAYS
     Route: 048
     Dates: start: 20141210
  2. LEFLUNOMIDE. [Suspect]
     Active Substance: LEFLUNOMIDE
     Dosage: FOUR TIMES A WEEK
     Route: 048
  3. PREDNISOLONE. [Concomitant]
     Active Substance: PREDNISOLONE
     Indication: RHEUMATOID ARTHRITIS
     Route: 065
     Dates: start: 199609
  4. CANDESARTAN [Concomitant]
     Active Substance: CANDESARTAN
     Indication: HYPERTENSION
     Route: 065
     Dates: start: 2010
  5. CELEBREX [Concomitant]
     Active Substance: CELECOXIB
     Indication: RHEUMATOID ARTHRITIS
     Route: 065
     Dates: start: 1996
  6. ENBREL [Suspect]
     Active Substance: ETANERCEPT
     Indication: RHEUMATOID ARTHRITIS
     Dosage: 50 MG, WEEKLY?SOLUTION FOR INJECTION IN PRE-FILLED PEN
     Route: 058
     Dates: start: 20150602
  7. ADCAL [Concomitant]
     Active Substance: CALCIUM CARBONATE
     Indication: OSTEOPENIA
     Route: 065
     Dates: start: 2010
  8. DOXAZOSIN [Concomitant]
     Active Substance: DOXAZOSIN\DOXAZOSIN MESYLATE
     Indication: HYPERTENSION
     Route: 065
     Dates: start: 2011
  9. LANSOPRAZOLE. [Concomitant]
     Active Substance: LANSOPRAZOLE
     Indication: PROPHYLAXIS AGAINST GASTROINTESTINAL ULCER
     Route: 065
     Dates: start: 2000
  10. ENBREL [Suspect]
     Active Substance: ETANERCEPT
     Indication: RHEUMATOID ARTHRITIS
     Dosage: SOLUTION FOR INJECTION IN PRE-FILLED SYRINGE
     Route: 058
     Dates: start: 20150602, end: 20160204
  11. TOLTERODINE [Concomitant]
     Active Substance: TOLTERODINE
     Route: 065

REACTIONS (14)
  - Blood pressure increased [Recovering/Resolving]
  - Rash [Recovered/Resolved]
  - Arthralgia [Recovering/Resolving]
  - Osteoarthritis [Recovering/Resolving]
  - Rheumatoid arthritis [Recovering/Resolving]
  - Palpitations [Recovered/Resolved]
  - Diarrhoea [Unknown]
  - Heart rate irregular [Unknown]
  - Sluggishness [Unknown]
  - Injection site rash [Not Recovered/Not Resolved]
  - Cardiac failure [Unknown]
  - Joint dislocation [Recovering/Resolving]
  - Atrial fibrillation [Unknown]
  - Anxiety [Recovering/Resolving]

NARRATIVE: CASE EVENT DATE: 20151003
